FAERS Safety Report 21407345 (Version 3)
Quarter: 2023Q1

REPORT INFORMATION
  Report Type: Spontaneous
  Country: US (occurrence: US)
  Receive Date: 20221004
  Receipt Date: 20230104
  Transmission Date: 20230417
  Serious: Yes (Other)
  Sender: FDA-Public Use
  Company Number: US-JNJFOC-20221000443

PATIENT
  Age: 8 Decade
  Sex: Female
  Weight: 68.5 kg

DRUGS (3)
  1. DARZALEX [Suspect]
     Active Substance: DARATUMUMAB
     Indication: Plasma cell myeloma
     Dosage: 7TH LINE THERAPY
     Route: 041
     Dates: start: 20220711, end: 20220913
  2. POMALIDOMIDE [Suspect]
     Active Substance: POMALIDOMIDE
     Indication: Plasma cell myeloma
     Dosage: 7TH LINE THERAPY
     Route: 065
     Dates: start: 20220711, end: 20220913
  3. DEXAMETHASONE [Suspect]
     Active Substance: DEXAMETHASONE
     Indication: Plasma cell myeloma
     Dosage: 7TH LINE THERAPY
     Route: 065
     Dates: start: 20220711, end: 20220913

REACTIONS (1)
  - Plasma cell myeloma [Recovered/Resolved]
